FAERS Safety Report 5316954-5 (Version None)
Quarter: 2007Q2

REPORT INFORMATION
  Report Type: 
  Country: None (occurrence: None)
  Receive Date: 20070501
  Receipt Date: 20070501
  Transmission Date: 20071010
  Serious: Yes (Life-Threatening, Hospitalization, Other)
  Sender: FDA-Public Use
  Company Number: None

PATIENT
  Age: 55 Year
  Sex: Female
  Weight: 65.7716 kg

DRUGS (1)
  1. COMBIPATCH [Suspect]
     Indication: MENOPAUSE
     Dosage: ONE PATCH   2X PER WEEK  TRANSDERMAL
     Route: 062
     Dates: start: 20020612, end: 20070112

REACTIONS (2)
  - ENDOMETRIAL CANCER [None]
  - OVARIAN CANCER [None]
